FAERS Safety Report 4395852-8 (Version None)
Quarter: 2004Q3

REPORT INFORMATION
  Report Type: 
  Country: None (occurrence: None)
  Receive Date: 20040709
  Receipt Date: 20040625
  Transmission Date: 20050211
  Serious: Yes (Other)
  Sender: FDA-Public Use
  Company Number: US-JNJFOC-20040607909

PATIENT
  Age: 74 Year
  Sex: Female

DRUGS (10)
  1. INFLIXIMAB (INFLIXIMAB, RECOMBINANT) [Suspect]
     Indication: RHEUMATOID ARTHRITIS
     Dosage: INTRAVENOUS
     Route: 042
     Dates: start: 20010723
  2. THYROID TAB [Concomitant]
  3. FOLIC ACID [Concomitant]
  4. CELEBREX [Concomitant]
  5. HALFPRIN (ACETYLSALICYLIC ACID) [Concomitant]
  6. FOSAMAX [Concomitant]
  7. METHOTREXATE [Concomitant]
  8. AMBIEN [Concomitant]
  9. TUMS (CALCIUM CARBONATE) [Concomitant]
  10. LIOTHYRONINE (LIOTHYRONINE) [Concomitant]

REACTIONS (1)
  - MALIGNANT MELANOMA [None]
